FAERS Safety Report 12674394 (Version 6)
Quarter: 2017Q1

REPORT INFORMATION
  Report Type: Report from Study
  Country: BE (occurrence: BE)
  Receive Date: 20160822
  Receipt Date: 20170127
  Transmission Date: 20170428
  Serious: Yes (Death, Life-Threatening, Hospitalization)
  Sender: FDA-Public Use
  Company Number: BE-ROCHE-1746821

PATIENT
  Age: 60 Year
  Sex: Male
  Weight: 90.4 kg

DRUGS (2)
  1. CYMEVENE [Suspect]
     Active Substance: GANCICLOVIR
     Route: 065
     Dates: start: 20160519, end: 20160530
  2. CYMEVENE [Suspect]
     Active Substance: GANCICLOVIR
     Indication: CYTOMEGALOVIRUS INFECTION
     Dosage: SUBSEQUENTLY RECEIVED ON 14/MAR/2016
     Route: 065
     Dates: start: 20160129, end: 20160421

REACTIONS (5)
  - Graft versus host disease in gastrointestinal tract [Recovering/Resolving]
  - Clostridium difficile colitis [Recovered/Resolved]
  - Cytomegalovirus infection [Fatal]
  - Escherichia sepsis [Recovered/Resolved]
  - Urosepsis [Recovered/Resolved]

NARRATIVE: CASE EVENT DATE: 20160301
